FAERS Safety Report 12207357 (Version 4)
Quarter: 2016Q2

REPORT INFORMATION
  Report Type: Report from Study
  Country: CO (occurrence: CO)
  Receive Date: 20160324
  Receipt Date: 20160629
  Transmission Date: 20160815
  Serious: Yes (Other)
  Sender: FDA-Public Use
  Company Number: CO-ABBVIE-16K-036-1589484-00

PATIENT
  Age: 59 Year
  Sex: Male
  Weight: 40 kg

DRUGS (2)
  1. HUMIRA [Suspect]
     Active Substance: ADALIMUMAB
     Route: 058
     Dates: start: 20160621
  2. HUMIRA [Suspect]
     Active Substance: ADALIMUMAB
     Indication: RHEUMATOID ARTHRITIS
     Route: 058
     Dates: start: 20150428, end: 20160304

REACTIONS (6)
  - Dysphagia [Recovered/Resolved]
  - Throat irritation [Recovered/Resolved]
  - Larynx irritation [Recovered/Resolved]
  - Dry throat [Recovered/Resolved]
  - Weight decreased [Recovered/Resolved]
  - Laryngitis viral [Recovered/Resolved]

NARRATIVE: CASE EVENT DATE: 20151119
